FAERS Safety Report 9195871 (Version 2)
Quarter: 2013Q2

REPORT INFORMATION
  Report Type: Spontaneous
  Country: US (occurrence: US)
  Receive Date: 20130328
  Receipt Date: 20130418
  Transmission Date: 20140414
  Serious: Yes (Other)
  Sender: FDA-Public Use
  Company Number: US-BAYER-2013-035945

PATIENT
  Age: 30 Year
  Sex: Female

DRUGS (1)
  1. MIRENA [Suspect]
     Dosage: 20 MCG/24HR, CONT
     Route: 015

REACTIONS (7)
  - Device breakage [None]
  - Complication of device removal [None]
  - Pain [None]
  - Device dislocation [None]
  - Vaginal haemorrhage [None]
  - Uterine cervix stenosis [None]
  - Pregnancy with contraceptive device [None]
